FAERS Safety Report 8015472-3 (Version None)
Quarter: 2011Q4

REPORT INFORMATION
  Report Type: 
  Country: None (occurrence: None)
  Receive Date: 20111230
  Receipt Date: 20111222
  Transmission Date: 20120403
  Serious: Yes (Hospitalization)
  Sender: FDA-Public Use
  Company Number: US-AMGEN-USASP2011065903

PATIENT
  Age: 60 Year
  Sex: Female
  Weight: 139.68 kg

DRUGS (1)
  1. ENBREL [Suspect]
     Indication: RHEUMATOID ARTHRITIS
     Dosage: 50 MG, QWK
     Dates: start: 20101001, end: 20110517

REACTIONS (9)
  - FALL [None]
  - SMALL INTESTINAL OBSTRUCTION [None]
  - RHEUMATOID ARTHRITIS [None]
  - SINUSITIS [None]
  - VOMITING [None]
  - WHITE BLOOD CELL COUNT ABNORMAL [None]
  - ABDOMINAL HERNIA REPAIR [None]
  - ABDOMINAL PAIN [None]
  - HAEMOGLOBIN DECREASED [None]
